FAERS Safety Report 15646741 (Version 1)
Quarter: 2018Q4

REPORT INFORMATION
  Report Type: Spontaneous
  Country: FR (occurrence: FR)
  Receive Date: 20181122
  Receipt Date: 20181122
  Transmission Date: 20190205
  Serious: Yes (Hospitalization, Other)
  Sender: FDA-Public Use
  Company Number: FR-TEVA-2018-FR-977237

PATIENT
  Age: 88 Year
  Sex: Female
  Weight: 36 kg

DRUGS (11)
  1. BISOPROLOL [Suspect]
     Active Substance: BISOPROLOL
     Indication: HYPERTENSION
     Dosage: 1.25 MILLIGRAM DAILY;
     Route: 065
     Dates: end: 20171204
  2. ATROPINE. [Suspect]
     Active Substance: ATROPINE
     Indication: ATRIOVENTRICULAR BLOCK COMPLETE
     Route: 065
     Dates: start: 201712
  3. IRBESARTAN/HYDROCHLOROTHIAZIDE [Concomitant]
     Active Substance: HYDROCHLOROTHIAZIDE\IRBESARTAN
     Indication: HYPERTENSION
     Route: 065
     Dates: start: 20171127
  4. BISOPROLOL [Interacting]
     Active Substance: BISOPROLOL
     Indication: ANGINA PECTORIS
  5. LACOSAMIDE. [Interacting]
     Active Substance: LACOSAMIDE
     Indication: NEURODEGENERATIVE DISORDER
  6. ACETAMINOPHEN. [Concomitant]
     Active Substance: ACETAMINOPHEN
     Dosage: 2 GRAM DAILY; IF NEEDED
     Route: 065
  7. CYANOCOBALAMIN. [Concomitant]
     Active Substance: CYANOCOBALAMIN
     Dosage: ON MONDAY AND TUESDAY
     Route: 065
  8. ENALAPRIL [Concomitant]
     Active Substance: ENALAPRIL
     Indication: HYPERTENSION
     Dosage: 2.5MG OR 5 MG ACCORDING TO BLOOD PRESSURE MEASUREMENTS
     Route: 065
     Dates: end: 20171127
  9. LACOSAMIDE. [Interacting]
     Active Substance: LACOSAMIDE
     Indication: EPILEPSY
     Dosage: 100 MILLIGRAM DAILY;
     Route: 065
     Dates: start: 20171128, end: 20171204
  10. MACROGOL [Concomitant]
     Active Substance: POLYETHYLENE GLYCOLS
     Dosage: ONCE OR TWICE A DAY
     Route: 065
  11. PANTOPRAZOLE [Concomitant]
     Active Substance: PANTOPRAZOLE
     Dosage: 20 MILLIGRAM DAILY;
     Route: 065

REACTIONS (3)
  - Drug interaction [Recovering/Resolving]
  - Drug ineffective [Unknown]
  - Atrioventricular block complete [Recovering/Resolving]

NARRATIVE: CASE EVENT DATE: 2017
